FAERS Safety Report 7877606-0 (Version None)
Quarter: 2011Q4

REPORT INFORMATION
  Report Type: 
  Country: None (occurrence: None)
  Receive Date: 20111031
  Receipt Date: 20111027
  Transmission Date: 20120403
  Serious: Yes (Death, Disabling)
  Sender: FDA-Public Use
  Company Number: FR-ASTRAZENECA-2009CG00313

PATIENT
  Age: 80 Year
  Sex: Female

DRUGS (7)
  1. FUROSEMIDE [Concomitant]
     Indication: HYPERTENSION
     Route: 048
  2. PERIDYS [Concomitant]
     Indication: GASTROOESOPHAGEAL REFLUX DISEASE
     Route: 048
  3. CRESTOR [Suspect]
     Route: 048
     Dates: start: 20070301, end: 20071001
  4. BISOPROLOL FUMARATE [Concomitant]
     Indication: HYPERTENSION
     Route: 048
  5. LEVOTHYROXINE SODIUM [Concomitant]
     Indication: HYPOTHYROIDISM
     Route: 048
  6. CRESTOR [Suspect]
     Indication: DYSLIPIDAEMIA
     Route: 048
     Dates: start: 20061001, end: 20070301
  7. POLYETHYLENE GLYCOL [Concomitant]
     Indication: CONSTIPATION
     Route: 048

REACTIONS (3)
  - AMYOTROPHIC LATERAL SCLEROSIS [None]
  - BLOOD CREATINE PHOSPHOKINASE INCREASED [None]
  - MUSCULAR WEAKNESS [None]
